FAERS Safety Report 4662607-6 (Version None)
Quarter: 2005Q2

REPORT INFORMATION
  Report Type: 
  Country: None (occurrence: None)
  Receive Date: 20050513
  Receipt Date: 20050513
  Transmission Date: 20051028
  Serious: Yes (Death)
  Sender: FDA-Public Use
  Company Number: None

PATIENT
  Age: 65 Year
  Sex: Female
  Weight: 84 kg

DRUGS (4)
  1. DOXORUBICIN [Suspect]
     Indication: ENDOMETRIAL CANCER
     Dosage: 45 MG/M2   INTRAVENOUS
     Route: 042
     Dates: start: 20050406, end: 20050406
  2. CISPLATIN [Suspect]
     Indication: ENDOMETRIAL CANCER
     Dosage: 50 MG/M2  INTRAVENOUS
     Route: 042
     Dates: start: 20050406, end: 20050406
  3. PACLITAXEL [Concomitant]
  4. NEULASTA [Concomitant]

REACTIONS (6)
  - BACK PAIN [None]
  - DIZZINESS [None]
  - LOSS OF CONSCIOUSNESS [None]
  - MYOCARDIAL INFARCTION [None]
  - OEDEMA PERIPHERAL [None]
  - PULMONARY EMBOLISM [None]
